FAERS Safety Report 5461426-0 (Version None)
Quarter: 2007Q3

REPORT INFORMATION
  Report Type: 
  Country: None (occurrence: None)
  Receive Date: 20070920
  Receipt Date: 20061010
  Transmission Date: 20080115
  Serious: No
  Sender: FDA-Public Use
  Company Number: A0622891A

PATIENT
  Age: 52 Year
  Sex: Female

DRUGS (1)
  1. ABREVA [Suspect]
     Dates: start: 20060923, end: 20060930

REACTIONS (5)
  - DRY SKIN [None]
  - FACIAL PAIN [None]
  - PRURITUS [None]
  - SCAB [None]
  - SKIN IRRITATION [None]
